FAERS Safety Report 6057737-0 (Version None)
Quarter: 2009Q1

REPORT INFORMATION
  Report Type: 
  Country: None (occurrence: None)
  Receive Date: 20090129
  Receipt Date: 20090122
  Transmission Date: 20090719
  Serious: Yes (Life-Threatening, Hospitalization)
  Sender: FDA-Public Use
  Company Number: US-PFIZER INC-2009159755

PATIENT
  Age: 48 Year
  Sex: Male

DRUGS (6)
  1. LIPITOR [Suspect]
     Dosage: UNK
     Dates: start: 20070401
  2. NITROGLYCERIN [Concomitant]
     Dosage: UNK
     Route: 060
  3. CELEXA [Concomitant]
     Dosage: UNK
  4. LISINOPRIL [Concomitant]
     Dosage: 2.5 MG, UNK
  5. METOPROLOL [Concomitant]
     Dosage: 50 MG, UNK
  6. PLAVIX [Concomitant]
     Dosage: UNK

REACTIONS (2)
  - DRY SKIN [None]
  - MYOCARDIAL INFARCTION [None]
